FAERS Safety Report 12319101 (Version 2)
Quarter: 2016Q2

REPORT INFORMATION
  Report Type: Spontaneous
  Country: US (occurrence: US)
  Receive Date: 20160429
  Receipt Date: 20160518
  Transmission Date: 20160815
  Serious: Yes (Other)
  Sender: FDA-Public Use
  Company Number: US-BAYER-2016-082600

PATIENT
  Age: 27 Year
  Sex: Female

DRUGS (1)
  1. MIRENA [Suspect]
     Active Substance: LEVONORGESTREL
     Indication: CONTRACEPTION
     Dosage: 20 MCG/24HR, CONT
     Route: 015
     Dates: end: 201510

REACTIONS (6)
  - Menorrhagia [None]
  - Unintentional medical device removal [None]
  - Habitual abortion [None]
  - Post procedural haemorrhage [None]
  - Genital haemorrhage [None]
  - Maternal exposure before pregnancy [None]

NARRATIVE: CASE EVENT DATE: 201510
